FAERS Safety Report 13758243 (Version 1)
Quarter: 2017Q3

REPORT INFORMATION
  Report Type: Spontaneous
  Country: US (occurrence: US)
  Receive Date: 20170715
  Receipt Date: 20170715
  Transmission Date: 20171127
  Serious: Yes (Other)
  Sender: FDA-Public Use
  Company Number: None

PATIENT
  Age: 45 Year
  Sex: Female
  Weight: 53.1 kg

DRUGS (2)
  1. NATURE-THROID [Concomitant]
     Active Substance: THYROID, PORCINE
  2. NEUTROGENA WET SKIN SWIM HUMIDITY SWEAT SUNSCREEN BROAD SPECTRUM SPF85 PLUS [Suspect]
     Active Substance: AVOBENZONE\HOMOSALATE\OCTISALATE\OCTOCRYLENE\OXYBENZONE
     Indication: PROPHYLAXIS AGAINST SOLAR RADIATION
     Dosage: ?          OTHER STRENGTH:SPF;?
     Route: 061
     Dates: start: 20170707, end: 20170707

REACTIONS (2)
  - Sunburn [None]
  - Blister [None]

NARRATIVE: CASE EVENT DATE: 20170707
